FAERS Safety Report 16211245 (Version 1)
Quarter: 2019Q2

REPORT INFORMATION
  Report Type: Report from Study
  Country: US (occurrence: US)
  Receive Date: 20190418
  Receipt Date: 20190418
  Transmission Date: 20190711
  Serious: Yes (Death, Hospitalization)
  Sender: FDA-Public Use
  Company Number: US-EMD SERONO-9085437

PATIENT
  Age: 72 Year
  Sex: Male

DRUGS (1)
  1. REBIF [Suspect]
     Active Substance: INTERFERON BETA-1A
     Indication: MULTIPLE SCLEROSIS
     Route: 058
     Dates: start: 20131015

REACTIONS (6)
  - Urinary tract infection [Unknown]
  - Death [Fatal]
  - Decubitus ulcer [Not Recovered/Not Resolved]
  - Increased tendency to bruise [Unknown]
  - Abnormal behaviour [Unknown]
  - Cardiac disorder [Unknown]

NARRATIVE: CASE EVENT DATE: 201902
